FAERS Safety Report 24153949 (Version 2)
Quarter: 2024Q3

REPORT INFORMATION
  Report Type: Spontaneous
  Country: US (occurrence: US)
  Receive Date: 20240730
  Receipt Date: 20240810
  Transmission Date: 20241016
  Serious: Yes (Hospitalization)
  Sender: TEVA
  Company Number: US-TEVA-VS-3222773

PATIENT
  Age: 38 Year
  Sex: Male

DRUGS (2)
  1. IBUPROFEN [Suspect]
     Active Substance: IBUPROFEN
     Indication: Pain management
     Dosage: SELF-INGESTION OF LARGE QUANTITY
     Route: 048
  2. ACETAMINOPHEN [Suspect]
     Active Substance: ACETAMINOPHEN
     Indication: Pain management
     Dosage: SELF-INGESTION OF LARGE QUANTITY
     Route: 048

REACTIONS (12)
  - Toxicity to various agents [Recovered/Resolved]
  - Upper gastrointestinal haemorrhage [Recovered/Resolved]
  - Liver injury [Recovered/Resolved]
  - Intentional product misuse [Unknown]
  - Vomiting [Recovered/Resolved]
  - Oesophagitis [Recovered/Resolved]
  - Mallory-Weiss syndrome [Recovered/Resolved]
  - Intentional overdose [Unknown]
  - Renal tubular necrosis [Recovered/Resolved]
  - Melaena [Recovered/Resolved]
  - Ocular icterus [Recovered/Resolved]
  - Haemodynamic instability [Recovered/Resolved]
